FAERS Safety Report 5597456-8 (Version None)
Quarter: 2007Q4

REPORT INFORMATION
  Report Type: 
  Country: None (occurrence: None)
  Receive Date: 20071221
  Receipt Date: 20070927
  Transmission Date: 20080405
  Serious: No
  Sender: FDA-Public Use
  Company Number: SPV1-2007-03988

PATIENT
  Age: 10 Year
  Sex: Male
  Weight: 41.7 kg

DRUGS (3)
  1. VYVANSE [Suspect]
     Indication: ATTENTION DEFICIT/HYPERACTIVITY DISORDER
     Dosage: 30 MG, 1X/DAY:QD, ORAL
     Route: 048
     Dates: start: 20070817, end: 20070101
  2. CLARITIN /00917501/ (LORATADINE) [Concomitant]
  3. FLONASE [Concomitant]

REACTIONS (1)
  - RESTLESS LEGS SYNDROME [None]
